FAERS Safety Report 4998972-X (Version None)
Quarter: 2006Q2

REPORT INFORMATION
  Report Type: 
  Country: None (occurrence: None)
  Receive Date: 20060510
  Receipt Date: 20050218
  Transmission Date: 20061013
  Serious: Yes (Hospitalization)
  Sender: FDA-Public Use
  Company Number: US-MERCK-0502USA02806

PATIENT
  Age: 41 Year
  Sex: Female
  Weight: 48 kg

DRUGS (6)
  1. IMIPRAMINE HCL [Concomitant]
     Route: 065
  2. SERZONE [Concomitant]
     Route: 065
  3. NEURONTIN [Concomitant]
     Route: 065
  4. PLAQUENIL [Concomitant]
     Route: 065
  5. PRILOSEC [Concomitant]
     Route: 065
  6. VIOXX [Suspect]
     Indication: ARTHRALGIA
     Route: 048
     Dates: start: 20010507, end: 20040731

REACTIONS (5)
  - CHEST PAIN [None]
  - CORONARY ARTERY DISEASE [None]
  - FLANK PAIN [None]
  - PALPITATIONS [None]
  - VENTRICULAR HYPOKINESIA [None]
